FAERS Safety Report 25561041 (Version 2)
Quarter: 2025Q3

REPORT INFORMATION
  Report Type: Spontaneous
  Country: US (occurrence: US)
  Receive Date: 20250715
  Receipt Date: 20250721
  Transmission Date: 20251021
  Serious: No
  Sender: SANOFI AVENTIS
  Company Number: US-SA-2025SA198640

PATIENT
  Age: 54 Year
  Sex: Female

DRUGS (13)
  1. DUPIXENT [Suspect]
     Active Substance: DUPILUMAB
     Indication: Eosinophilic oesophagitis
     Dosage: 300 MG, QW
     Route: 058
     Dates: start: 202506
  2. SYMBICORT [Suspect]
     Active Substance: BUDESONIDE\FORMOTEROL FUMARATE DIHYDRATE
     Dates: start: 2025, end: 2025
  3. EPIPEN [Concomitant]
     Active Substance: EPINEPHRINE
  4. ADRENALIN [Concomitant]
     Active Substance: EPINEPHRINE
  5. ROSUVASTATIN CALCIUM [Concomitant]
     Active Substance: ROSUVASTATIN CALCIUM
  6. AMLODIPINE BESYLATE [Concomitant]
     Active Substance: AMLODIPINE BESYLATE
  7. EZETIMIBE [Concomitant]
     Active Substance: EZETIMIBE
  8. VITAMIN D [Concomitant]
     Active Substance: VITAMIN D NOS
  9. ALBUTEROL SULFATE [Concomitant]
     Active Substance: ALBUTEROL SULFATE
  10. TYLENOL [Concomitant]
     Active Substance: ACETAMINOPHEN
  11. LORATADINE [Concomitant]
     Active Substance: LORATADINE
  12. LOSARTAN POTASSIUM [Concomitant]
     Active Substance: LOSARTAN POTASSIUM
  13. FAMOTIDINE [Concomitant]
     Active Substance: FAMOTIDINE

REACTIONS (11)
  - Rash macular [Unknown]
  - Nervousness [Unknown]
  - Chest pain [Unknown]
  - Wheezing [Unknown]
  - Gait disturbance [Unknown]
  - Goitre [Unknown]
  - Feeling jittery [Unknown]
  - Pulmonary pain [Unknown]
  - Dyspnoea [Unknown]
  - Injection site erythema [Not Recovered/Not Resolved]
  - Arthralgia [Unknown]

NARRATIVE: CASE EVENT DATE: 20250101
